FAERS Safety Report 17849516 (Version 1)
Quarter: 2020Q2

REPORT INFORMATION
  Report Type: Spontaneous
  Country: US (occurrence: US)
  Receive Date: 20200601
  Receipt Date: 20200601
  Transmission Date: 20200714
  Serious: Yes (Hospitalization)
  Sender: FDA-Public Use
  Company Number: None

PATIENT
  Sex: Male

DRUGS (11)
  1. DOXYCYCL HYC [Concomitant]
  2. DOXYCYC MONO [Concomitant]
     Active Substance: DOXYCYCLINE
  3. METOLAZONE. [Concomitant]
     Active Substance: METOLAZONE
  4. TORSEMIDE. [Concomitant]
     Active Substance: TORSEMIDE
  5. ALBUTEROL AER [Concomitant]
  6. PREDNISONE. [Concomitant]
     Active Substance: PREDNISONE
  7. AZITHROMYCIN ANHYDROUS. [Concomitant]
     Active Substance: AZITHROMYCIN ANHYDROUS
  8. CEFUROXIME. [Concomitant]
     Active Substance: CEFUROXIME
  9. ESBRIET [Suspect]
     Active Substance: PIRFENIDONE
     Indication: IDIOPATHIC PULMONARY FIBROSIS
     Route: 048
     Dates: start: 20171230
  10. BENZONATATE. [Concomitant]
     Active Substance: BENZONATATE
  11. METHYLPRED [Concomitant]
     Active Substance: METHYLPREDNISOLONE

REACTIONS (6)
  - Feeding disorder [None]
  - Dyspnoea [None]
  - Pleural effusion [None]
  - Lung disorder [None]
  - Therapy interrupted [None]
  - Cardiac disorder [None]
